FAERS Safety Report 4786548-9 (Version None)
Quarter: 2005Q3

REPORT INFORMATION
  Report Type: 
  Country: None (occurrence: None)
  Receive Date: 20050927
  Receipt Date: 20050706
  Transmission Date: 20060218
  Serious: No
  Sender: FDA-Public Use
  Company Number: USA0507102111

PATIENT
  Age: 43 Year
  Sex: Male

DRUGS (2)
  1. STRATTERA [Suspect]
     Indication: ATTENTION DEFICIT/HYPERACTIVITY DISORDER
     Dosage: 90 MG DAY
     Dates: start: 20030101
  2. LAMICTAL [Concomitant]

REACTIONS (5)
  - BLOOD TESTOSTERONE DECREASED [None]
  - DRUG EFFECT DECREASED [None]
  - DRY MOUTH [None]
  - ERECTILE DYSFUNCTION [None]
  - HYPERHIDROSIS [None]
